FAERS Safety Report 19432221 (Version 2)
Quarter: 2021Q3

REPORT INFORMATION
  Report Type: Report from Study
  Country: US (occurrence: US)
  Receive Date: 20210617
  Receipt Date: 20210731
  Transmission Date: 20211014
  Serious: Yes (Hospitalization, Other)
  Sender: FDA-Public Use
  Company Number: NVSC2021US133895

PATIENT
  Sex: Male

DRUGS (1)
  1. VOTRIENT [Suspect]
     Active Substance: PAZOPANIB HYDROCHLORIDE
     Indication: PRODUCT USED FOR UNKNOWN INDICATION
     Dosage: UNK
     Route: 065

REACTIONS (11)
  - Parkinson^s disease [Unknown]
  - Metastases to lung [Unknown]
  - Metastases to bone [Unknown]
  - Tremor [Unknown]
  - Dysgraphia [Unknown]
  - Feeding disorder [Unknown]
  - Limb injury [Unknown]
  - Dysphagia [Unknown]
  - Dementia [Unknown]
  - Neoplasm malignant [Unknown]
  - Renal cell carcinoma stage IV [Unknown]
